FAERS Safety Report 6784445-0 (Version None)
Quarter: 2010Q2

REPORT INFORMATION
  Report Type: 
  Country: None (occurrence: None)
  Receive Date: 20100622
  Receipt Date: 20100622
  Transmission Date: 20101027
  Serious: Yes (Death, Life-Threatening)
  Sender: FDA-Public Use
  Company Number: JP-JNJFOC-20100602707

PATIENT
  Sex: Male

DRUGS (15)
  1. LOPERAMIDE [Suspect]
     Indication: DRUG USE FOR UNKNOWN INDICATION
     Route: 048
  2. CAMPTOSAR [Suspect]
     Indication: NON-SMALL CELL LUNG CANCER
     Route: 042
  3. NIFEDIPINE [Concomitant]
     Route: 065
  4. NICORANDIL [Concomitant]
     Route: 065
  5. ISOSORBIDE DINITRATE [Concomitant]
     Route: 065
  6. DILTIAZEM HYDROCHLORIDE [Concomitant]
     Route: 065
  7. HERBAL NERVE TONIC LIQUID [Concomitant]
     Route: 065
  8. BETAMETHASONE SODIUM PHOSPHATE [Concomitant]
     Route: 065
  9. DICLOFENAC SODIUM [Concomitant]
     Route: 065
  10. CEFTAZIDIME [Concomitant]
     Route: 065
  11. VANCOMYCIN HYDROCHLORIDE [Concomitant]
     Route: 065
  12. FILGRASTIM [Concomitant]
     Route: 065
  13. NITROGLYCERIN [Concomitant]
     Route: 065
  14. IMIPENEM AND CILASTATIN SODIUM [Concomitant]
     Route: 065
  15. LENOGRASTIM [Concomitant]
     Route: 065

REACTIONS (11)
  - BLOOD BILIRUBIN INCREASED [None]
  - BLOOD CREATININE INCREASED [None]
  - BLOOD UREA INCREASED [None]
  - DIARRHOEA [None]
  - HAEMOGLOBIN DECREASED [None]
  - ILEUS PARALYTIC [None]
  - LEUKOPENIA [None]
  - NEUTROPENIA [None]
  - PSEUDOMEMBRANOUS COLITIS [None]
  - SHOCK [None]
  - THROMBOCYTOPENIA [None]
